FAERS Safety Report 5337385-8 (Version None)
Quarter: 2007Q2

REPORT INFORMATION
  Report Type: 
  Country: None (occurrence: None)
  Receive Date: 20070529
  Receipt Date: 20070521
  Transmission Date: 20071010
  Serious: Yes (Disabling)
  Sender: FDA-Public Use
  Company Number: FR-PFIZER INC-2007041373

PATIENT
  Age: 25 Year
  Sex: Male
  Weight: 70 kg

DRUGS (1)
  1. GENOTONORM [Suspect]
     Indication: GROWTH RETARDATION
     Route: 058
     Dates: start: 19890101, end: 19980101

REACTIONS (1)
  - OSTEOARTHRITIS [None]
